FAERS Safety Report 15969638 (Version 3)
Quarter: 2019Q2

REPORT INFORMATION
  Report Type: Spontaneous
  Country: US (occurrence: US)
  Receive Date: 20190215
  Receipt Date: 20190410
  Transmission Date: 20190711
  Serious: Yes (Hospitalization, Other)
  Sender: FDA-Public Use
  Company Number: US-ASTRAZENECA-2019SE23647

PATIENT
  Age: 84 Year
  Sex: Male
  Weight: 109.3 kg

DRUGS (6)
  1. ADVAIR HFA [Concomitant]
     Active Substance: FLUTICASONE PROPIONATE\SALMETEROL XINAFOATE
     Dates: start: 20181015
  2. OMEPRAZOLE. [Suspect]
     Active Substance: OMEPRAZOLE
     Indication: ABDOMINAL DISCOMFORT
     Route: 048
  3. SYMBICORT [Suspect]
     Active Substance: BUDESONIDE\FORMOTEROL FUMARATE DIHYDRATE
     Indication: CHRONIC OBSTRUCTIVE PULMONARY DISEASE
     Dosage: 160/4.5 MCG TWO INHALATIONS TWICE A DAY
     Route: 055
  4. OMEPRAZOLE. [Suspect]
     Active Substance: OMEPRAZOLE
     Indication: GOUT
     Route: 048
  5. SYMBICORT [Suspect]
     Active Substance: BUDESONIDE\FORMOTEROL FUMARATE DIHYDRATE
     Indication: CARDIAC FAILURE CONGESTIVE
     Dosage: 160/4.5 MCG TWO INHALATIONS TWICE A DAY
     Route: 055
  6. BABY ASPIRIN [Concomitant]
     Active Substance: ASPIRIN

REACTIONS (16)
  - Gait disturbance [Unknown]
  - Thrombosis [Not Recovered/Not Resolved]
  - Drug dependence [Unknown]
  - Chest pain [Unknown]
  - Renal failure [Recovered/Resolved with Sequelae]
  - Visual acuity reduced [Unknown]
  - Fatigue [Unknown]
  - Device failure [Unknown]
  - Limb injury [Unknown]
  - Pulmonary oedema [Unknown]
  - Hypoacusis [Unknown]
  - Contusion [Unknown]
  - Scrotal oedema [Unknown]
  - Oedema peripheral [Not Recovered/Not Resolved]
  - Dyspnoea [Unknown]
  - Intentional product misuse [Unknown]

NARRATIVE: CASE EVENT DATE: 20181015
